FAERS Safety Report 7157244-8 (Version None)
Quarter: 2010Q4

REPORT INFORMATION
  Report Type: 
  Country: None (occurrence: None)
  Receive Date: 20101214
  Receipt Date: 20091211
  Transmission Date: 20110411
  Serious: No
  Sender: FDA-Public Use
  Company Number: US-ASTRAZENECA-2009SE31570

PATIENT
  Age: 23504 Day
  Sex: Male
  Weight: 81.6 kg

DRUGS (3)
  1. CRESTOR [Suspect]
     Indication: BLOOD CHOLESTEROL INCREASED
     Route: 048
     Dates: start: 20091101
  2. AVALITE [Concomitant]
  3. AMITRIPTYLINE [Concomitant]

REACTIONS (2)
  - HEADACHE [None]
  - NECK PAIN [None]
